FAERS Safety Report 4825571-2 (Version None)
Quarter: 2005Q4

REPORT INFORMATION
  Report Type: 
  Country: None (occurrence: None)
  Receive Date: 20051111
  Receipt Date: 20050915
  Transmission Date: 20060501
  Serious: No
  Sender: FDA-Public Use
  Company Number: US-GLAXOSMITHKLINE-A0574434A

PATIENT
  Age: 74 Year
  Sex: Male
  Weight: 77.7 kg

DRUGS (6)
  1. AVODART [Suspect]
     Indication: BENIGN PROSTATIC HYPERPLASIA
     Dosage: .5MG PER DAY
     Route: 048
  2. ASPIRIN [Concomitant]
     Dosage: 80MG PER DAY
     Route: 048
  3. MULTI-VITAMIN [Concomitant]
     Dosage: 1TAB PER DAY
     Route: 048
  4. PROVIGIL [Concomitant]
     Route: 048
     Dates: start: 20041220
  5. VIAGRA [Concomitant]
     Indication: ERECTILE DYSFUNCTION
     Dosage: 50MG AS REQUIRED
     Route: 048
  6. HYDROCODONE BITARTRATE + ACETAMINOPHEN [Concomitant]
     Indication: PAIN
     Route: 048

REACTIONS (2)
  - HOT FLUSH [None]
  - HYPERHIDROSIS [None]
